FAERS Safety Report 9145717 (Version 1)
Quarter: 2013Q1

REPORT INFORMATION
  Report Type: Spontaneous
  Country: US (occurrence: None)
  Receive Date: 20130227
  Receipt Date: 20130227
  Transmission Date: 20140127
  Serious: Yes (Life-Threatening)
  Sender: FDA-Public Use
  Company Number: None

PATIENT
  Age: 47 Year
  Sex: Male

DRUGS (1)
  1. COPAXONE 20MG TEVA [Suspect]
     Indication: MULTIPLE SCLEROSIS
     Dosage: 20MG QDAY SQ
     Route: 058
     Dates: start: 20120221, end: 20130225

REACTIONS (4)
  - Palpitations [None]
  - Pyrexia [None]
  - Musculoskeletal stiffness [None]
  - Product quality issue [None]
